FAERS Safety Report 17977748 (Version 1)
Quarter: 2020Q3

REPORT INFORMATION
  Report Type: Spontaneous
  Country: DK (occurrence: DK)
  Receive Date: 20200703
  Receipt Date: 20200703
  Transmission Date: 20201103
  Serious: Yes (Hospitalization)
  Sender: FDA-Public Use
  Company Number: DK-ROCHE-2633866

PATIENT
  Age: 65 Year
  Sex: Male

DRUGS (10)
  1. OLOPATADINE. [Concomitant]
     Active Substance: OLOPATADINE
     Indication: CONJUNCTIVITIS
     Dosage: STYRKE: 1 MG/ML
     Route: 065
     Dates: start: 20160419
  2. SILDENAFIL. [Concomitant]
     Active Substance: SILDENAFIL
     Indication: ERECTILE DYSFUNCTION
     Route: 048
     Dates: start: 20150507
  3. FEXOFENADINE [Concomitant]
     Active Substance: FEXOFENADINE HYDROCHLORIDE
     Indication: HYPERSENSITIVITY
     Dosage: STYRKE: 180 MG.
     Route: 048
     Dates: start: 20150507
  4. PARACETAMOL [Concomitant]
     Active Substance: ACETAMINOPHEN
     Indication: PAIN
     Dosage: STYRKE: 500 MG.
     Route: 048
     Dates: start: 20191217
  5. PEGASYS [Suspect]
     Active Substance: PEGINTERFERON ALFA-2A
     Indication: PRIMARY MYELOFIBROSIS
     Route: 058
     Dates: start: 20200128
  6. AMLODIPINE [Concomitant]
     Active Substance: AMLODIPINE BESYLATE
     Indication: HYPERTENSION
     Dosage: STYRKE: 5 MG.
     Route: 048
     Dates: start: 20150407
  7. ASCORBIC ACID. [Concomitant]
     Active Substance: ASCORBIC ACID
     Indication: VITAMIN SUPPLEMENTATION
     Dosage: STYRKE: 500 MG.
     Route: 048
     Dates: start: 20200121
  8. MAGNESIUM HYDROXIDE. [Concomitant]
     Active Substance: MAGNESIUM HYDROXIDE
     Indication: MUSCLE SPASMS
     Dosage: STYRKE: 500 MG.
     Route: 048
     Dates: start: 20200121
  9. ACETYLSALICYLIC ACID [Concomitant]
     Active Substance: ASPIRIN
     Indication: THROMBOSIS PROPHYLAXIS
     Dosage: STYRKE: 75 MG.
     Route: 048
     Dates: start: 20191217
  10. FUCICORT [Concomitant]
     Active Substance: BETAMETHASONE VALERATE\FUSIDIC ACID
     Indication: SKIN DISORDER
     Dosage: STYRKE: 1 + 20 MG/G
     Route: 003
     Dates: start: 20180316

REACTIONS (4)
  - Type 2 diabetes mellitus [Not Recovered/Not Resolved]
  - Pollakiuria [Unknown]
  - Weight decreased [Unknown]
  - Thirst [Unknown]

NARRATIVE: CASE EVENT DATE: 202004
